FAERS Safety Report 9619216 (Version 1)
Quarter: 2013Q4

REPORT INFORMATION
  Report Type: Spontaneous
  Country: DE (occurrence: DE)
  Receive Date: 20131014
  Receipt Date: 20131014
  Transmission Date: 20140711
  Serious: Yes (Life-Threatening, Hospitalization)
  Sender: FDA-Public Use
  Company Number: DE-B.I. PHARMACEUTICALS,INC./RIDGEFIELD-2013-BI-32328DE

PATIENT
  Age: 79 Year
  Sex: Male
  Weight: 80 kg

DRUGS (5)
  1. PRADAXA [Suspect]
     Indication: ATRIAL FIBRILLATION
     Dosage: 220 MG
     Route: 048
  2. BISO 5MG [Concomitant]
     Indication: HYPERTENSION
     Dosage: 5 MG
     Route: 048
  3. DIGITOXIN [Concomitant]
     Indication: HYPERTENSION
     Dosage: 0.07 MG
     Route: 048
  4. RAMIPRIL COMP 5/25 [Concomitant]
     Indication: HYPERTENSION
     Dosage: 1 ANZ
     Route: 048
  5. VELMETIA 50/1000 [Concomitant]
     Indication: TYPE 2 DIABETES MELLITUS
     Dosage: 1 ANZ
     Route: 048

REACTIONS (4)
  - Fall [Unknown]
  - Upper gastrointestinal haemorrhage [Unknown]
  - Shock haemorrhagic [Unknown]
  - Thoracic haemorrhage [Unknown]
